FAERS Safety Report 5323106-1 (Version None)
Quarter: 2007Q2

REPORT INFORMATION
  Report Type: 
  Country: None (occurrence: None)
  Receive Date: 20070507
  Receipt Date: 20070426
  Transmission Date: 20071010
  Serious: Yes (Hospitalization)
  Sender: FDA-Public Use
  Company Number: 2007SP008083

PATIENT
  Age: 16 Year
  Sex: Male

DRUGS (2)
  1. PEGINTRON (PEGINTERFERON ALFA-2B) (PEGINTRON ALFA-2B) [Suspect]
     Indication: MALIGNANT MELANOMA
     Dosage: 220 MCG; QD; SC
     Route: 058
     Dates: start: 20070201, end: 20070309
  2. PEG-INTRON [Concomitant]

REACTIONS (2)
  - EMBOLISM [None]
  - SKIN DISORDER [None]
